FAERS Safety Report 22601929 (Version 1)
Quarter: 2023Q2

REPORT INFORMATION
  Report Type: Spontaneous
  Country: US (occurrence: US)
  Receive Date: 20230614
  Receipt Date: 20230614
  Transmission Date: 20230721
  Serious: No
  Sender: FDA-Public Use
  Company Number: ENDG22-07103

PATIENT
  Age: 93 Year
  Sex: Female

DRUGS (1)
  1. BOSENTAN [Suspect]
     Active Substance: BOSENTAN
     Indication: Pulmonary hypertension
     Dosage: 125 MG, BID
     Route: 048
     Dates: start: 202102

REACTIONS (1)
  - Upper-airway cough syndrome [Unknown]

NARRATIVE: CASE EVENT DATE: 20221123
